FAERS Safety Report 19853801 (Version 1)
Quarter: 2021Q3

REPORT INFORMATION
  Report Type: Other
  Country: US (occurrence: US)
  Receive Date: 20210920
  Receipt Date: 20210920
  Transmission Date: 20211014
  Serious: Yes (Death)
  Sender: FDA-Public Use
  Company Number: US-ROCHE-2911181

PATIENT
  Sex: Female

DRUGS (4)
  1. HERCEPTIN [Suspect]
     Active Substance: TRASTUZUMAB
     Indication: CHOLANGIOCARCINOMA
     Dosage: INFUSE 517MG INTRAVENOUSLY EVERY 3 WEEK
     Route: 042
  2. HERCEPTIN [Suspect]
     Active Substance: TRASTUZUMAB
     Indication: METASTASIS
  3. PERJETA [Suspect]
     Active Substance: PERTUZUMAB
     Indication: METASTASIS
     Route: 042
  4. PERJETA [Suspect]
     Active Substance: PERTUZUMAB
     Indication: CHOLANGIOCARCINOMA

REACTIONS (2)
  - Death [Fatal]
  - Off label use [Unknown]
